FAERS Safety Report 5221068-9 (Version None)
Quarter: 2007Q1

REPORT INFORMATION
  Report Type: 
  Country: None (occurrence: None)
  Receive Date: 20070126
  Receipt Date: 20070125
  Transmission Date: 20070707
  Serious: Yes (Hospitalization)
  Sender: FDA-Public Use
  Company Number: US-GLAXOSMITHKLINE-A0636827A

PATIENT
  Age: 40 Year
  Sex: Female

DRUGS (5)
  1. GOODY'S EXTRA STRENGTH HEADACHE POWDER [Suspect]
     Indication: HEADACHE
     Route: 048
  2. GOODY'S EXTRA STRENGTH HEADACHE POWDER [Suspect]
  3. GOODY'S EXTRA STRENGTH HEADACHE POWDER [Suspect]
  4. GOODY'S EXTRA STRENGTH HEADACHE POWDER [Suspect]
  5. NEXIUM [Concomitant]

REACTIONS (6)
  - DEPENDENCE [None]
  - FAECES DISCOLOURED [None]
  - GASTRIC PERFORATION [None]
  - HAEMORRHAGE [None]
  - LOSS OF CONSCIOUSNESS [None]
  - MALAISE [None]
